FAERS Safety Report 16421823 (Version 1)
Quarter: 2019Q2

REPORT INFORMATION
  Report Type: Spontaneous
  Country: US (occurrence: US)
  Receive Date: 20190612
  Receipt Date: 20190612
  Transmission Date: 20190711
  Serious: Yes (Other)
  Sender: FDA-Public Use
  Company Number: US-SUNOVION-2019SUN002423

PATIENT

DRUGS (2)
  1. QUETIAPINE. [Concomitant]
     Active Substance: QUETIAPINE
  2. LATUDA [Suspect]
     Active Substance: LURASIDONE HYDROCHLORIDE
     Dosage: UNK
     Route: 048

REACTIONS (14)
  - Fatigue [Unknown]
  - Impaired work ability [Unknown]
  - Depression [Unknown]
  - Restlessness [Unknown]
  - Feeling of despair [Unknown]
  - Abdominal discomfort [Unknown]
  - Feeling cold [Unknown]
  - Asthenia [Unknown]
  - Nausea [Recovered/Resolved]
  - Apathy [Unknown]
  - Insomnia [Unknown]
  - Off label use [Unknown]
  - Suicidal ideation [Unknown]
  - Violence-related symptom [Unknown]

NARRATIVE: CASE EVENT DATE: 20190607
